FAERS Safety Report 6361746-1 (Version None)
Quarter: 2009Q3

REPORT INFORMATION
  Report Type: 
  Country: None (occurrence: None)
  Receive Date: 20090918
  Receipt Date: 20090911
  Transmission Date: 20100115
  Serious: Yes (Hospitalization)
  Sender: FDA-Public Use
  Company Number: JP-ALLERGAN-0912900US

PATIENT
  Age: 22 Year
  Sex: Male

DRUGS (1)
  1. BOTOX [Suspect]
     Indication: CEREBRAL PALSY
     Dosage: 100 UNITS, SINGLE
     Route: 030
     Dates: start: 20090907, end: 20090907

REACTIONS (4)
  - ACUTE HEPATIC FAILURE [None]
  - BLOOD CREATINE PHOSPHOKINASE INCREASED [None]
  - NEUROLEPTIC MALIGNANT SYNDROME [None]
  - PYREXIA [None]
